FAERS Safety Report 9996976 (Version 1)
Quarter: 2014Q1

REPORT INFORMATION
  Report Type: Spontaneous
  Country: US (occurrence: US)
  Receive Date: 20140311
  Receipt Date: 20140311
  Transmission Date: 20141002
  Serious: No
  Sender: FDA-Public Use
  Company Number: US-BAYER-2014-036855

PATIENT
  Age: 64 Year
  Sex: Female
  Weight: 83.9 kg

DRUGS (2)
  1. ALEVE TABLET [Suspect]
     Indication: ARTHRITIS
     Dosage: 1-2 DF, PRN
     Route: 048
  2. ALEVE TABLET [Suspect]
     Indication: ARTHRITIS
     Dosage: 1-2 DF, PRN
     Route: 048
     Dates: start: 20140227

REACTIONS (1)
  - Drug ineffective [None]
